FAERS Safety Report 16533462 (Version 1)
Quarter: 2019Q3

REPORT INFORMATION
  Report Type: Spontaneous
  Country: JP (occurrence: JP)
  Receive Date: 20190704
  Receipt Date: 20190704
  Transmission Date: 20191004
  Serious: Yes (Other)
  Sender: FDA-Public Use
  Company Number: JP-AMGEN-JPNSP2019081836

PATIENT
  Age: 67 Year
  Sex: Male
  Weight: 37 kg

DRUGS (9)
  1. MOSAPRIDE CITRATE [Concomitant]
     Active Substance: MOSAPRIDE CITRATE
     Dosage: 15 MILLIGRAM
     Route: 048
  2. PRALIA [Suspect]
     Active Substance: DENOSUMAB
     Indication: OSTEOPOROSIS
     Dosage: 60 MILLIGRAM, Q6MO
     Route: 058
  3. AMLODIPINE [Concomitant]
     Active Substance: AMLODIPINE BESYLATE
     Dosage: 5 MILLIGRAM
     Route: 048
  4. LYRICA [Concomitant]
     Active Substance: PREGABALIN
     Dosage: 50 MILLIGRAM
     Route: 048
  5. ALFACALCIDOL [Concomitant]
     Active Substance: ALFACALCIDOL
     Dosage: 4 MICROGRAM
     Route: 048
  6. REBAMIPIDE [Concomitant]
     Active Substance: REBAMIPIDE
     Dosage: 200 MILLIGRAM
     Route: 048
  7. HERBAL NOS [Concomitant]
     Active Substance: HERBALS
     Dosage: 7.5 MILLIGRAM
     Route: 048
  8. HOKUNALIN [Concomitant]
     Active Substance: TULOBUTEROL
     Dosage: 2 MILLIGRAM
  9. CAMOSTAT MESILATE [Concomitant]
     Active Substance: CAMOSTAT MESYLATE
     Dosage: 300 MILLIGRAM
     Route: 048

REACTIONS (2)
  - Spinal fracture [Not Recovered/Not Resolved]
  - Tartrate-resistant acid phosphatase increased [Not Recovered/Not Resolved]
